FAERS Safety Report 6199032-5 (Version None)
Quarter: 2009Q2

REPORT INFORMATION
  Report Type: 
  Country: None (occurrence: None)
  Receive Date: 20090522
  Receipt Date: 20090513
  Transmission Date: 20091009
  Serious: Yes (Other)
  Sender: FDA-Public Use
  Company Number: CA-JNJFOC-20090101934

PATIENT
  Sex: Male
  Weight: 132 kg

DRUGS (5)
  1. REMICADE [Suspect]
     Route: 042
  2. REMICADE [Suspect]
     Indication: ANKYLOSING SPONDYLITIS
     Route: 042
  3. METHOTREXATE [Concomitant]
     Route: 048
  4. DILANTIN [Concomitant]
     Route: 048
  5. VALPROIC ACID [Concomitant]
     Route: 048

REACTIONS (3)
  - BACK PAIN [None]
  - FALL [None]
  - MUSCULAR WEAKNESS [None]
